FAERS Safety Report 20092065 (Version 1)
Quarter: 2021Q4

REPORT INFORMATION
  Report Type: Spontaneous
  Country: US (occurrence: US)
  Receive Date: 20211119
  Receipt Date: 20211119
  Transmission Date: 20220304
  Serious: Yes (Other)
  Sender: FDA-Public Use
  Company Number: US-TOLMAR, INC.-21US031524

PATIENT
  Age: 79 Year
  Sex: Male

DRUGS (3)
  1. ELIGARD [Suspect]
     Active Substance: LEUPROLIDE ACETATE
     Indication: Salivary gland cancer
     Dosage: UNK
  2. ELIGARD [Suspect]
     Active Substance: LEUPROLIDE ACETATE
     Indication: Metastases to lung
  3. LAPATINIB [Suspect]
     Active Substance: LAPATINIB
     Indication: Metastatic salivary gland cancer
     Dosage: UNK
     Dates: start: 202102

REACTIONS (3)
  - Metastatic salivary gland cancer [Unknown]
  - Off label use [Unknown]
  - Therapeutic product effect variable [Unknown]
